FAERS Safety Report 8561203-8 (Version None)
Quarter: 2012Q3

REPORT INFORMATION
  Report Type: 
  Country: None (occurrence: None)
  Receive Date: 20120802
  Receipt Date: 20120405
  Transmission Date: 20120928
  Serious: No
  Sender: FDA-Public Use
  Company Number: US-BRISTOL-MYERS SQUIBB COMPANY-16505083

PATIENT
  Age: 67 Year
  Sex: Female

DRUGS (2)
  1. ESTRACE [Suspect]
     Indication: MENOPAUSAL SYMPTOMS
  2. CENESTIN [Suspect]
     Indication: MENOPAUSAL SYMPTOMS

REACTIONS (1)
  - DRUG INEFFECTIVE [None]
